FAERS Safety Report 25655739 (Version 1)
Quarter: 2025Q3

REPORT INFORMATION
  Report Type: Spontaneous
  Country: US (occurrence: US)
  Receive Date: 20250807
  Receipt Date: 20250807
  Transmission Date: 20251021
  Serious: Yes (Hospitalization, Other)
  Sender: AUTOLUS THERAPEUTICS
  Company Number: US-Autolus Ltd-2182057

PATIENT
  Age: 23 Year
  Sex: Female

DRUGS (1)
  1. AUCATZYL [Suspect]
     Active Substance: OBECABTAGENE AUTOLEUCEL
     Indication: B-cell type acute leukaemia
     Dates: start: 20250602, end: 20250611

REACTIONS (4)
  - Acute graft versus host disease [Recovered/Resolved]
  - Cytokine release syndrome [Recovered/Resolved]
  - Ascites [Recovered/Resolved]
  - Hyperbilirubinaemia [Recovered/Resolved]

NARRATIVE: CASE EVENT DATE: 20250621
